FAERS Safety Report 23098062 (Version 1)
Quarter: 2023Q4

REPORT INFORMATION
  Report Type: Spontaneous
  Country: DE (occurrence: DE)
  Receive Date: 20231023
  Receipt Date: 20231023
  Transmission Date: 20240110
  Serious: Yes (Life-Threatening, Other)
  Sender: FDA-Public Use
  Company Number: DE-Iscador AG-2023000017

PATIENT
  Age: 43 Year
  Sex: Female

DRUGS (8)
  1. BACLOFEN [Suspect]
     Active Substance: BACLOFEN
     Indication: Product used for unknown indication
     Dosage: UNK
     Route: 065
  2. PACLITAXEL [Suspect]
     Active Substance: PACLITAXEL
     Indication: Product used for unknown indication
     Dosage: UNK
     Route: 065
  3. VISCUM ALBUM FRUITING TOP [Suspect]
     Active Substance: VISCUM ALBUM FRUITING TOP
     Indication: Neoplasm malignant
     Dosage: 16 MILLIGRAM
     Route: 065
     Dates: start: 202201
  4. VISCUM ALBUM FRUITING TOP [Suspect]
     Active Substance: VISCUM ALBUM FRUITING TOP
     Dosage: 10 MILLIGRAM
     Route: 065
  5. NOVALGIN (METAMIZOLE SODIUM) [Suspect]
     Active Substance: METAMIZOLE SODIUM
     Indication: Contusion
     Dosage: UNK
     Route: 042
  6. ABEMACICLIB [Suspect]
     Active Substance: ABEMACICLIB
     Indication: Product used for unknown indication
     Dosage: UNK
     Route: 065
  7. TAMOXIFEN [Concomitant]
     Active Substance: TAMOXIFEN
     Indication: Breast cancer
     Dosage: UNK
     Route: 065
  8. ELIQUIS [Concomitant]
     Active Substance: APIXABAN
     Indication: Product used for unknown indication
     Dosage: UNK
     Route: 065

REACTIONS (6)
  - Anaphylactic shock [Recovered/Resolved]
  - Contusion [Unknown]
  - Injection site urticaria [Recovering/Resolving]
  - Application site oedema [Unknown]
  - Application site erythema [Unknown]
  - Overdose [Recovered/Resolved]
